FAERS Safety Report 6104768-8 (Version None)
Quarter: 2009Q1

REPORT INFORMATION
  Report Type: 
  Country: None (occurrence: None)
  Receive Date: 20090304
  Receipt Date: 20090304
  Transmission Date: 20090719
  Serious: Yes (Hospitalization)
  Sender: FDA-Public Use
  Company Number: None

PATIENT
  Age: 31 Year
  Sex: Female
  Weight: 83.9154 kg

DRUGS (2)
  1. LIDOCAINE VISCOUS [Suspect]
     Indication: GASTROINTESTINAL DISORDER
     Dates: start: 20050310
  2. PROTONIX [Suspect]
     Indication: GASTROINTESTINAL DISORDER
     Dosage: 40MG

REACTIONS (3)
  - CONFUSIONAL STATE [None]
  - FEAR [None]
  - URINE BARBITURATES INCREASED [None]
